FAERS Safety Report 5143437-8 (Version None)
Quarter: 2006Q4

REPORT INFORMATION
  Report Type: 
  Country: None (occurrence: None)
  Receive Date: 20061103
  Receipt Date: 20060711
  Transmission Date: 20070319
  Serious: Yes (Hospitalization, Disabling, Other)
  Sender: FDA-Public Use
  Company Number: US-MERCK-0607USA01860

PATIENT
  Age: 82 Year
  Sex: Female
  Weight: 59 kg

DRUGS (20)
  1. VYTORIN [Suspect]
     Indication: HYPERCHOLESTEROLAEMIA
     Route: 048
     Dates: start: 20060202, end: 20060628
  2. ZOCOR [Concomitant]
     Route: 048
     Dates: end: 20060301
  3. LASIX [Concomitant]
     Indication: SWELLING
     Route: 048
  4. FOSAMAX [Concomitant]
     Route: 048
  5. VALIUM [Concomitant]
     Route: 048
  6. CENTRUM SILVER [Concomitant]
     Route: 065
  7. VITAMIN E [Concomitant]
     Route: 048
  8. CALCIUM (UNSPECIFIED) [Concomitant]
     Route: 048
  9. CELEBREX [Concomitant]
     Route: 048
  10. PLAVIX [Concomitant]
     Route: 048
  11. PROTONIX [Concomitant]
     Route: 048
  12. NITROGLYCERIN [Concomitant]
     Indication: CHEST PAIN
     Route: 065
  13. ULTRAM [Concomitant]
     Indication: PAIN
     Route: 048
  14. NORMODYNE [Concomitant]
     Indication: BLOOD PRESSURE
     Route: 048
  15. POTASSIUM (UNSPECIFIED) [Concomitant]
     Route: 065
  16. HYOSCYAMINE [Concomitant]
     Indication: ABDOMINAL PAIN
     Route: 060
  17. OMEGA-3 MARINE TRIGLYCERIDES [Concomitant]
     Route: 065
  18. MICARDIS [Concomitant]
     Indication: BLOOD PRESSURE INCREASED
     Route: 048
  19. FLONASE [Concomitant]
  20. AMBIEN [Concomitant]
     Indication: SLEEP DISORDER
     Route: 048

REACTIONS (24)
  - ABDOMINAL PAIN UPPER [None]
  - ANXIETY [None]
  - BACK PAIN [None]
  - BLOOD PRESSURE INCREASED [None]
  - CARDIAC FAILURE CONGESTIVE [None]
  - CARDIAC MURMUR [None]
  - CONSTIPATION [None]
  - CONTUSION [None]
  - DEHYDRATION [None]
  - DIARRHOEA [None]
  - EMPHYSEMA [None]
  - FALL [None]
  - HEADACHE [None]
  - INSOMNIA [None]
  - MUSCLE SPASMS [None]
  - OSTEOARTHRITIS [None]
  - PARAESTHESIA [None]
  - PHARYNGITIS STREPTOCOCCAL [None]
  - PLEURAL EFFUSION [None]
  - PNEUMONIA [None]
  - RENAL FAILURE ACUTE [None]
  - RESTLESS LEGS SYNDROME [None]
  - RHABDOMYOLYSIS [None]
  - RHINITIS [None]
